FAERS Safety Report 21979732 (Version 3)
Quarter: 2025Q3

REPORT INFORMATION
  Report Type: Spontaneous
  Country: EU (occurrence: EU)
  Receive Date: 20230210
  Receipt Date: 20250710
  Transmission Date: 20251020
  Serious: Yes (Other)
  Sender: JAZZ
  Company Number: EU-GW PHARMA-2023-DE-002639

PATIENT
  Weight: 75 kg

DRUGS (7)
  1. CANNABIDIOL [Suspect]
     Active Substance: CANNABIDIOL
     Indication: Lennox-Gastaut syndrome
  2. CANNABIDIOL [Suspect]
     Active Substance: CANNABIDIOL
  3. PERAMPANEL [Concomitant]
     Active Substance: PERAMPANEL
     Indication: Product used for unknown indication
  4. PERAMPANEL [Concomitant]
     Active Substance: PERAMPANEL
  5. CLOBAZAM [Concomitant]
     Active Substance: CLOBAZAM
     Indication: Product used for unknown indication
  6. CLOBAZAM [Concomitant]
     Active Substance: CLOBAZAM
  7. LACOSAMIDE [Concomitant]
     Active Substance: LACOSAMIDE
     Indication: Product used for unknown indication

REACTIONS (5)
  - Hepatic encephalopathy [Unknown]
  - Seizure [Unknown]
  - Somnolence [Unknown]
  - General physical health deterioration [Unknown]
  - Hepatic enzyme increased [Unknown]
